FAERS Safety Report 15028697 (Version 1)
Quarter: 2018Q2

REPORT INFORMATION
  Report Type: Spontaneous
  Country: PT (occurrence: PT)
  Receive Date: 20180619
  Receipt Date: 20180619
  Transmission Date: 20180711
  Serious: Yes (Other)
  Sender: FDA-Public Use
  Company Number: PT-PFIZER INC-2018244164

PATIENT
  Age: 66 Year
  Sex: Female
  Weight: 65 kg

DRUGS (8)
  1. TRASTUZUMAB. [Suspect]
     Active Substance: TRASTUZUMAB
     Dosage: UNK
     Route: 058
  2. 5-FLUOROURACIL [Concomitant]
     Active Substance: FLUOROURACIL
     Indication: INVASIVE BREAST CARCINOMA
     Route: 065
     Dates: start: 20170330
  3. EPIRUBICIN [Concomitant]
     Active Substance: EPIRUBICIN
     Indication: INVASIVE BREAST CARCINOMA
     Route: 065
     Dates: start: 20170330, end: 2017
  4. SERTRALINE [Concomitant]
     Active Substance: SERTRALINE HYDROCHLORIDE
  5. CYCLOPHOSPHAMIDE. [Concomitant]
     Active Substance: CYCLOPHOSPHAMIDE
     Indication: INVASIVE BREAST CARCINOMA
     Route: 065
     Dates: start: 20170330, end: 2017
  6. PERJETA [Suspect]
     Active Substance: PERTUZUMAB
     Indication: INVASIVE BREAST CARCINOMA
     Dosage: UNK
     Route: 065
     Dates: start: 20170601
  7. DOCETAXEL. [Suspect]
     Active Substance: DOCETAXEL
     Indication: INVASIVE BREAST CARCINOMA
     Dosage: UNK
     Route: 065
     Dates: start: 20170601
  8. TRASTUZUMAB. [Suspect]
     Active Substance: TRASTUZUMAB
     Indication: INVASIVE BREAST CARCINOMA
     Dosage: UNK
     Route: 065
     Dates: start: 20170601, end: 20170713

REACTIONS (5)
  - Nausea [Unknown]
  - Left atrial dilatation [Unknown]
  - Mitral valve incompetence [Unknown]
  - Radiation skin injury [Unknown]
  - Anaemia [Unknown]

NARRATIVE: CASE EVENT DATE: 201706
